FAERS Safety Report 15866816 (Version 2)
Quarter: 2019Q1

REPORT INFORMATION
  Report Type: Spontaneous
  Country: US (occurrence: US)
  Receive Date: 20190125
  Receipt Date: 20190314
  Transmission Date: 20190417
  Serious: No
  Sender: FDA-Public Use
  Company Number: US-BAYER-2019-018728

PATIENT
  Age: 82 Year
  Sex: Female
  Weight: 77 kg

DRUGS (3)
  1. AMLODIPINE [Concomitant]
     Active Substance: AMLODIPINE BESYLATE
  2. ALEVE [Suspect]
     Active Substance: NAPROXEN SODIUM
     Indication: PAIN
     Dosage: 2 CAPLETS AT MORNING, 2 CAPLETS AT NIGHTUNK
  3. ALEVE [Suspect]
     Active Substance: NAPROXEN SODIUM
     Indication: PAIN
     Dosage: 2 DF
     Route: 048
     Dates: start: 201812

REACTIONS (4)
  - Incorrect dose administered [Unknown]
  - Drug ineffective [Unknown]
  - Product physical issue [None]
  - Product colour issue [None]

NARRATIVE: CASE EVENT DATE: 201812
